FAERS Safety Report 5292485-6 (Version None)
Quarter: 2007Q2

REPORT INFORMATION
  Report Type: 
  Country: None (occurrence: None)
  Receive Date: 20070410
  Receipt Date: 20070404
  Transmission Date: 20071010
  Serious: Yes (Other)
  Sender: FDA-Public Use
  Company Number: CN-PFIZER INC-2007022931

PATIENT
  Sex: Male

DRUGS (3)
  1. ZOLOFT [Suspect]
     Indication: ANXIETY
     Route: 048
     Dates: start: 20040901, end: 20060301
  2. PAROXETINE [Suspect]
     Indication: ANXIETY
     Dosage: DAILY DOSE:10MG
     Dates: start: 20020201, end: 20040101
  3. ALCOHOL [Suspect]

REACTIONS (13)
  - ANXIETY [None]
  - DEPRESSED MOOD [None]
  - DIZZINESS [None]
  - DRUG INTOLERANCE [None]
  - HALLUCINATION [None]
  - HEADACHE [None]
  - MEMORY IMPAIRMENT [None]
  - PANIC REACTION [None]
  - PARAESTHESIA [None]
  - SENSORY DISTURBANCE [None]
  - SUICIDAL IDEATION [None]
  - SYNOVITIS [None]
  - VERTIGO [None]
